FAERS Safety Report 18255956 (Version 2)
Quarter: 2020Q4

REPORT INFORMATION
  Report Type: Spontaneous
  Country: BE (occurrence: BE)
  Receive Date: 20200910
  Receipt Date: 20201013
  Transmission Date: 20210113
  Serious: No
  Sender: FDA-Public Use
  Company Number: BE-MYLANLABS-2020M1072053

PATIENT

DRUGS (1)
  1. EPIPEN [Suspect]
     Active Substance: EPINEPHRINE
     Indication: PRODUCT USED FOR UNKNOWN INDICATION
     Dosage: UNK INJECTION SOLUTION-PRE-FILLED PEN, PRN
     Route: 030

REACTIONS (3)
  - Needle issue [Unknown]
  - Product quality issue [Unknown]
  - Device failure [Unknown]
